FAERS Safety Report 6605056 (Version 2)
Quarter: 2020Q3

REPORT INFORMATION
  Report Type: Report from Study
  Country: US (occurrence: US)
  Receive Date: 20080403
  Receipt Date: 20080422
  Transmission Date: 20201105
  Serious: Yes (Death)
  Sender: FDA-Public Use
  Company Number: US-ROCHE-555422

PATIENT
  Sex: Female

DRUGS (1)
  1. IBANDRONIC ACID. [Suspect]
     Active Substance: IBANDRONIC ACID
     Indication: BONE DENSITY DECREASED
     Route: 065
     Dates: end: 200510

REACTIONS (3)
  - Coronary artery occlusion [None]
  - Myocardial infarction [Fatal]
  - Procedural complication [None]

NARRATIVE: CASE EVENT DATE: 20051118
